FAERS Safety Report 5220538-7 (Version None)
Quarter: 2007Q1

REPORT INFORMATION
  Report Type: 
  Country: None (occurrence: None)
  Receive Date: 20070125
  Receipt Date: 20070125
  Transmission Date: 20070707
  Serious: Yes (Hospitalization)
  Sender: FDA-Public Use
  Company Number: None

PATIENT
  Sex: Male
  Weight: 104.3273 kg

DRUGS (4)
  1. VASOTEC [Suspect]
     Indication: HYPERTENSION
     Dosage: PO PRIOR TO ADMISSION
     Route: 048
  2. ATENOLOL [Suspect]
     Indication: HYPERTENSION
     Dosage: PO PRIOR TO ADMISSION
     Route: 048
  3. HYDROCHLOROTHIAZIDE [Concomitant]
  4. NORVASC [Concomitant]

REACTIONS (2)
  - LIP SWELLING [None]
  - SWELLING FACE [None]
